FAERS Safety Report 6178338-X (Version None)
Quarter: 2009Q2

REPORT INFORMATION
  Report Type: 
  Country: None (occurrence: None)
  Receive Date: 20090504
  Receipt Date: 20090427
  Transmission Date: 20091009
  Serious: Yes (Life-Threatening, Hospitalization)
  Sender: FDA-Public Use
  Company Number: JP-SANOFI-SYNTHELABO-F01200800242

PATIENT
  Sex: Male
  Weight: 75 kg

DRUGS (20)
  1. DIOVAN [Concomitant]
     Dosage: UNK
     Dates: start: 20071128, end: 20071205
  2. DECADRON [Concomitant]
     Dosage: UNK
     Dates: start: 20071003, end: 20071128
  3. KYTRIL [Concomitant]
     Dosage: UNK
     Dates: start: 20071003, end: 20071212
  4. LIPITOR [Concomitant]
     Dosage: UNK
     Dates: start: 20070910, end: 20071205
  5. URINORM [Concomitant]
     Dosage: UNK
     Dates: start: 20070910, end: 20071205
  6. AMARYL [Concomitant]
     Dosage: UNK
     Dates: start: 20070910, end: 20071205
  7. RENIVACE [Concomitant]
     Dosage: UNK
     Dates: start: 20070910, end: 20071205
  8. ADALAT CC [Concomitant]
     Dosage: UNK
     Dates: start: 20070910, end: 20071205
  9. BEVACIZUMAB [Suspect]
     Route: 042
     Dates: start: 20071212, end: 20071212
  10. IRINOTECAN HYDROCHLORIDE [Suspect]
     Dosage: UNK
     Route: 041
  11. FLUOROURACIL [Suspect]
     Route: 042
     Dates: start: 20071212, end: 20071214
  12. MUCOSOLVAN [Concomitant]
     Dosage: UNK
     Dates: start: 20080321, end: 20080520
  13. THEO-DUR [Concomitant]
     Dosage: UNK
     Dates: start: 20080321, end: 20080520
  14. CLARITH [Concomitant]
     Dosage: UNK
     Dates: start: 20080321, end: 20080520
  15. LASIX [Concomitant]
     Dosage: UNK
     Dates: start: 20080226, end: 20080520
  16. ROHYPNOL [Concomitant]
     Dosage: UNK
     Dates: start: 20080226, end: 20080309
  17. ALDACTONE [Concomitant]
     Dosage: UNK
     Dates: start: 20080226, end: 20080309
  18. ALDACTONE [Concomitant]
     Dosage: UNK
     Dates: start: 20080310, end: 20080520
  19. LEUCOVORIN CALCIUM [Suspect]
     Route: 042
     Dates: start: 20071212, end: 20071212
  20. OXALIPLATIN [Suspect]
     Indication: RECTAL CANCER METASTATIC
     Route: 042
     Dates: start: 20071212, end: 20071212

REACTIONS (2)
  - ACUTE RESPIRATORY DISTRESS SYNDROME [None]
  - PYREXIA [None]
